FAERS Safety Report 24579173 (Version 1)
Quarter: 2024Q4

REPORT INFORMATION
  Report Type: Spontaneous
  Country: ES (occurrence: ES)
  Receive Date: 20241105
  Receipt Date: 20241105
  Transmission Date: 20250114
  Serious: Yes (Death, Hospitalization, Other)
  Sender: BRISTOL-MYERS SQUIBB COMPANY
  Company Number: None

PATIENT
  Age: 61 Year
  Sex: Male

DRUGS (3)
  1. OPDIVO [Suspect]
     Active Substance: NIVOLUMAB
     Indication: Lung neoplasm malignant
     Dosage: 1 VIAL OF 10 ML
     Route: 042
     Dates: start: 20230809, end: 20240918
  2. YERVOY [Suspect]
     Active Substance: IPILIMUMAB
     Indication: Lung neoplasm malignant
     Dosage: 1 VIAL OF 10 ML
     Route: 042
     Dates: start: 20230809, end: 20230918
  3. PEMETREXED [Concomitant]
     Active Substance: PEMETREXED
     Indication: Lung neoplasm malignant
     Route: 042
     Dates: start: 20230809, end: 20230918

REACTIONS (4)
  - Immune-mediated encephalitis [Fatal]
  - Pneumonia aspiration [Fatal]
  - Immune-mediated lung disease [Fatal]
  - Tremor [Unknown]

NARRATIVE: CASE EVENT DATE: 20240927
